FAERS Safety Report 7829212-1 (Version None)
Quarter: 2011Q4

REPORT INFORMATION
  Report Type: 
  Country: None (occurrence: None)
  Receive Date: 20111020
  Receipt Date: 20111018
  Transmission Date: 20120403
  Serious: Yes (Hospitalization, Other)
  Sender: FDA-Public Use
  Company Number: PHEH2011US04325

PATIENT
  Sex: Female

DRUGS (3)
  1. TOBI [Suspect]
     Indication: CYSTIC FIBROSIS
     Dosage: 300 MG, BID
     Dates: start: 20110622, end: 20110808
  2. CIPROFLOXACIN [Concomitant]
     Dosage: UNK UKN, UNK
     Dates: end: 20110908
  3. CEFTAZIDIME [Concomitant]
     Dosage: UNK UKN, UNK

REACTIONS (1)
  - INFECTIVE PULMONARY EXACERBATION OF CYSTIC FIBROSIS [None]
